FAERS Safety Report 24353811 (Version 4)
Quarter: 2024Q4

REPORT INFORMATION
  Report Type: Spontaneous
  Country: AR (occurrence: AR)
  Receive Date: 20240923
  Receipt Date: 20241029
  Transmission Date: 20250115
  Serious: Yes (Death, Other)
  Sender: SANDOZ
  Company Number: AR-SANDOZ-SDZ2024AR068939

PATIENT
  Age: 22 Year
  Sex: Female
  Weight: 59.1 kg

DRUGS (5)
  1. TREPROSTINIL [Suspect]
     Active Substance: TREPROSTINIL
     Indication: Pulmonary arterial hypertension
     Dosage: 7,0 NG/KG/MIN, QD, ONCE A DAY (5 MG/ML)
     Route: 058
     Dates: start: 20240724, end: 20241011
  2. TREPROSTINIL [Suspect]
     Active Substance: TREPROSTINIL
     Dosage: 10,0 NG/KG/MIN; CONT?NOUS INFUSION
     Route: 058
     Dates: start: 20240724
  3. TREPROSTINIL [Suspect]
     Active Substance: TREPROSTINIL
     Dosage: 11,0 NG/KG/MIN; CONTINUOUS INFUSION
     Route: 058
     Dates: end: 20241011
  4. TADALAFIL [Suspect]
     Active Substance: TADALAFIL
     Dosage: 20 MG
     Route: 065
  5. TADALAFIL [Suspect]
     Active Substance: TADALAFIL
     Indication: Product used for unknown indication
     Dosage: 40 MG
     Route: 065

REACTIONS (34)
  - Cardio-respiratory arrest [Fatal]
  - Syncope [Unknown]
  - Palpitations [Unknown]
  - Agitation [Unknown]
  - Movement disorder [Unknown]
  - Gait disturbance [Unknown]
  - Erythema [Unknown]
  - Heat stroke [Unknown]
  - Circadian rhythm sleep disorder [Unknown]
  - Urinary incontinence [Unknown]
  - Anxiety disorder due to a general medical condition [Unknown]
  - Poor quality sleep [Unknown]
  - Agitation [Unknown]
  - Hyperhidrosis [Unknown]
  - Swelling face [Unknown]
  - Heart rate increased [Unknown]
  - Depression [Unknown]
  - Malaise [Unknown]
  - Infusion site hypersensitivity [Unknown]
  - Blood pressure decreased [Unknown]
  - Injection site discomfort [Recovering/Resolving]
  - Oedema [Unknown]
  - Puncture site pain [Unknown]
  - Nausea [Unknown]
  - Vomiting [Unknown]
  - Injection site erythema [Recovering/Resolving]
  - Headache [Unknown]
  - Pain in jaw [Not Recovered/Not Resolved]
  - Fatigue [Unknown]
  - Injection site pain [Unknown]
  - Dyspnoea [Unknown]
  - Chest pain [Unknown]
  - Treatment failure [Unknown]
  - Wrong technique in product usage process [Unknown]

NARRATIVE: CASE EVENT DATE: 20240725
